FAERS Safety Report 23055607 (Version 1)
Quarter: 2023Q4

REPORT INFORMATION
  Report Type: Spontaneous
  Country: SK (occurrence: SK)
  Receive Date: 20231011
  Receipt Date: 20231011
  Transmission Date: 20240110
  Serious: Yes (Hospitalization, Other)
  Sender: FDA-Public Use
  Company Number: SK-ELI_LILLY_AND_COMPANY-SK202310001256

PATIENT
  Age: 45 Year
  Sex: Male

DRUGS (1)
  1. TALTZ [Suspect]
     Active Substance: IXEKIZUMAB
     Indication: Psoriasis
     Dosage: UNK UNK, UNKNOWN
     Route: 058
     Dates: start: 20200622

REACTIONS (10)
  - Hepatitis alcoholic [Unknown]
  - Anaemia [Unknown]
  - Hepatic fibrosis [Unknown]
  - Alcoholism [Unknown]
  - Depression [Unknown]
  - Psychotic symptom [Unknown]
  - Hepatic failure [Unknown]
  - Pruritus [Recovered/Resolved]
  - Psoriasis [Unknown]
  - Drug eruption [Unknown]
